FAERS Safety Report 4364508-X (Version None)
Quarter: 2004Q2

REPORT INFORMATION
  Report Type: 
  Country: None (occurrence: None)
  Receive Date: 20040519
  Receipt Date: 20040507
  Transmission Date: 20050107
  Serious: Yes (Other)
  Sender: FDA-Public Use
  Company Number: US-JNJFOC-20040501703

PATIENT
  Age: 66 Year
  Sex: Female

DRUGS (4)
  1. DURAGESIC [Suspect]
     Indication: PAIN
     Dosage: 50 UG/HR, 1 IN 72 HOUR, TRANSDERMAL
     Route: 062
     Dates: start: 20040301, end: 20040504
  2. NEURONTIN [Concomitant]
  3. EVISTA [Concomitant]
  4. ANTIDEPRESSANT (ANTIDEPRESSANT) [Concomitant]

REACTIONS (8)
  - ASTHENIA [None]
  - BLOOD PRESSURE INCREASED [None]
  - DRUG WITHDRAWAL SYNDROME [None]
  - DYSGRAPHIA [None]
  - HALLUCINATION [None]
  - MEMORY IMPAIRMENT [None]
  - PANIC ATTACK [None]
  - WEIGHT DECREASED [None]
